FAERS Safety Report 7486046-8 (Version None)
Quarter: 2011Q2

REPORT INFORMATION
  Report Type: 
  Country: None (occurrence: None)
  Receive Date: 20110517
  Receipt Date: 20110513
  Transmission Date: 20111010
  Serious: Yes (Death, Life-Threatening, Other)
  Sender: FDA-Public Use
  Company Number: VE-PFIZER INC-2011099006

PATIENT
  Age: 58 Year
  Sex: Male

DRUGS (1)
  1. LIPITOR [Suspect]
     Indication: HYPERCHOLESTEROLAEMIA
     Dosage: UNK
     Route: 048
     Dates: start: 20100101, end: 20110407

REACTIONS (4)
  - MYOCARDIAL INFARCTION [None]
  - RESPIRATORY ARREST [None]
  - RENAL FAILURE [None]
  - LARGE INTESTINE PERFORATION [None]
